FAERS Safety Report 13855684 (Version 4)
Quarter: 2020Q1

REPORT INFORMATION
  Report Type: Spontaneous
  Country: US (occurrence: US)
  Receive Date: 20170810
  Receipt Date: 20200320
  Transmission Date: 20200409
  Serious: Yes (Other)
  Sender: FDA-Public Use
  Company Number: US-VIFOR (INTERNATIONAL) INC.-VIT-2017-06833

PATIENT
  Age: 87 Year
  Sex: Female

DRUGS (15)
  1. VELTASSA [Suspect]
     Active Substance: PATIROMER
     Indication: HYPERKALAEMIA
     Route: 048
     Dates: start: 201705
  2. LASIX [Concomitant]
     Active Substance: FUROSEMIDE
  3. PANTOPRAZOLE SODIUM. [Concomitant]
     Active Substance: PANTOPRAZOLE SODIUM
  4. COLECALCIFEROL [Concomitant]
     Active Substance: CHOLECALCIFEROL
  5. SENNOSIDE A+B [Concomitant]
     Active Substance: SENNOSIDES A AND B
  6. GABAPENTIN. [Concomitant]
     Active Substance: GABAPENTIN
  7. VELTASSA [Suspect]
     Active Substance: PATIROMER
     Route: 048
     Dates: start: 20170621
  8. INSULIN GLARGINE [Concomitant]
     Active Substance: INSULIN GLARGINE
  9. DIGOXIN. [Concomitant]
     Active Substance: DIGOXIN
  10. BIOTIN [Concomitant]
     Active Substance: BIOTIN
  11. TRAMADOL HYDROCHLORIDE. [Concomitant]
     Active Substance: TRAMADOL HYDROCHLORIDE
  12. COREG [Concomitant]
     Active Substance: CARVEDILOL
  13. MULTIVITAMIN [Concomitant]
     Active Substance: VITAMINS
  14. KAYEXALATE [Concomitant]
     Active Substance: SODIUM POLYSTYRENE SULFONATE
  15. KIONEX [Concomitant]
     Active Substance: SODIUM POLYSTYRENE SULFONATE

REACTIONS (6)
  - Urinary tract infection staphylococcal [Unknown]
  - Product preparation issue [Unknown]
  - Fall [Unknown]
  - Drug intolerance [Unknown]
  - Constipation [Recovering/Resolving]
  - Hip fracture [Unknown]

NARRATIVE: CASE EVENT DATE: 2017
